FAERS Safety Report 9201011 (Version 2)
Quarter: 2013Q2

REPORT INFORMATION
  Report Type: Spontaneous
  Country: FR (occurrence: FR)
  Receive Date: 20130401
  Receipt Date: 20130424
  Transmission Date: 20140414
  Serious: Yes (Life-Threatening, Hospitalization)
  Sender: FDA-Public Use
  Company Number: FR-JNJFOC-20130316558

PATIENT
  Age: 79 Year
  Sex: Male

DRUGS (7)
  1. XARELTO [Suspect]
     Indication: CEREBROVASCULAR ACCIDENT PROPHYLAXIS
     Route: 048
     Dates: start: 20121212, end: 20130211
  2. XARELTO [Suspect]
     Indication: ATRIAL FIBRILLATION
     Route: 048
     Dates: start: 20121212, end: 20130211
  3. LYRICA [Suspect]
     Indication: NEURALGIA
     Route: 048
     Dates: start: 201212
  4. TAREG [Concomitant]
     Route: 065
     Dates: start: 201210
  5. SOTALOL [Concomitant]
     Route: 065
     Dates: start: 201210
  6. LAMALINE [Concomitant]
     Route: 065
     Dates: start: 201211
  7. SIMVASTATINE [Concomitant]
     Route: 065

REACTIONS (3)
  - Haemoptysis [Recovered/Resolved]
  - Blood albumin decreased [Not Recovered/Not Resolved]
  - Weight decreased [Not Recovered/Not Resolved]
